FAERS Safety Report 8634936 (Version 2)
Quarter: 2015Q1

REPORT INFORMATION
  Report Type: Spontaneous
  Country: US (occurrence: US)
  Receive Date: 20120626
  Receipt Date: 20150319
  Transmission Date: 20150721
  Serious: Yes (Death, Other)
  Sender: FDA-Public Use
  Company Number: US-MUTUAL PHARMACEUTICAL COMPANY, INC.-MTCD20120001

PATIENT

DRUGS (2)
  1. METOCLOPRAMIDE HYDROCHLORIDE TABLETS, USP 5 MG [Suspect]
     Active Substance: METOCLOPRAMIDE HYDROCHLORIDE
     Indication: PRODUCT USED FOR UNKNOWN INDICATION
     Dosage: UNK
     Route: 048
     Dates: start: 2006, end: 2009
  2. REGLAN [Suspect]
     Active Substance: METOCLOPRAMIDE HYDROCHLORIDE
     Indication: PRODUCT USED FOR UNKNOWN INDICATION
     Dosage: UNK
     Route: 048
     Dates: start: 2006, end: 2009

REACTIONS (3)
  - Tardive dyskinesia [Unknown]
  - Parkinson^s disease [Unknown]
  - Tremor [Unknown]
